FAERS Safety Report 7561049-3 (Version None)
Quarter: 2011Q2

REPORT INFORMATION
  Report Type: 
  Country: None (occurrence: None)
  Receive Date: 20110621
  Receipt Date: 20110609
  Transmission Date: 20111010
  Serious: Yes (Hospitalization)
  Sender: FDA-Public Use
  Company Number: US-UCBSA-021494

PATIENT
  Sex: Male
  Weight: 46 kg

DRUGS (14)
  1. PREDNISONE [Concomitant]
     Dosage: DAILY FOR 1 WEEK
     Dates: start: 20100420
  2. PREDNISONE [Concomitant]
     Indication: CROHN'S DISEASE
     Dates: start: 20020701, end: 20020901
  3. LOPERAMIDE [Concomitant]
     Indication: CROHN'S DISEASE
  4. CYMBALTA [Concomitant]
  5. VANCOMYCIN [Concomitant]
  6. CERTOLIZUMAB PEGOL [Suspect]
     Route: 058
     Dates: start: 20100323
  7. FLAGYL [Concomitant]
  8. IBUPROFEN [Concomitant]
     Indication: CROHN'S DISEASE
  9. HEPARIN [Concomitant]
     Route: 058
  10. CERTOLIZUMAB PEGOL [Suspect]
     Indication: CROHN'S DISEASE
     Route: 058
     Dates: start: 20100122, end: 20100219
  11. ZOSYN [Concomitant]
  12. PREDNISONE [Concomitant]
     Dates: start: 20090601, end: 20090811
  13. PEPCID [Concomitant]
  14. CIPROFLOXACIN [Concomitant]

REACTIONS (2)
  - ABDOMINAL ABSCESS [None]
  - CROHN'S DISEASE [None]
